FAERS Safety Report 10276899 (Version 1)
Quarter: 2014Q3

REPORT INFORMATION
  Report Type: Spontaneous
  Country: US (occurrence: None)
  Receive Date: 20140701
  Receipt Date: 20140701
  Transmission Date: 20150326
  Serious: No
  Sender: FDA-Public Use
  Company Number: None

PATIENT
  Age: 81 Year
  Sex: Female
  Weight: 69.4 kg

DRUGS (8)
  1. CARVEDIL 3.125 [Concomitant]
  2. LISINOPRIL. [Concomitant]
     Active Substance: LISINOPRIL
  3. CLOPIDOGREL [Suspect]
     Active Substance: CLOPIDOGREL BISULFATE
     Indication: THROMBOSIS PROPHYLAXIS
     Dosage: STRENGTH 75 MG  1 PILL  1 DAILY  BY MOUTH
     Route: 048
     Dates: start: 20140307, end: 20140310
  4. FUROSEMIDE 20MG [Concomitant]
     Active Substance: FUROSEMIDE
  5. ASPRIN 81 [Concomitant]
  6. VITAMIN D [Concomitant]
     Active Substance: CHOLECALCIFEROL
  7. PLAVIX 75 [Concomitant]
  8. POTASSIUM 10 [Concomitant]

REACTIONS (2)
  - Pruritus [None]
  - Rash [None]

NARRATIVE: CASE EVENT DATE: 20140307
